FAERS Safety Report 5611292-5 (Version None)
Quarter: 2008Q1

REPORT INFORMATION
  Report Type: 
  Country: None (occurrence: None)
  Receive Date: 20080201
  Receipt Date: 20080125
  Transmission Date: 20080703
  Serious: Yes (Hospitalization)
  Sender: FDA-Public Use
  Company Number: JP-ASTRAZENECA-2008AP00635

PATIENT
  Age: 75 Year
  Sex: Female

DRUGS (3)
  1. CRESTOR [Suspect]
     Indication: HYPERCHOLESTEROLAEMIA
     Route: 048
     Dates: start: 20071024, end: 20071221
  2. RIZABEN [Suspect]
     Dosage: DOSE UNKNOWN
     Route: 048
     Dates: start: 20071116, end: 20071221
  3. DASEN [Suspect]
     Dosage: DOSE UNKNOWN
     Route: 048
     Dates: start: 20071116, end: 20071221

REACTIONS (1)
  - HEPATIC FUNCTION ABNORMAL [None]
